FAERS Safety Report 4401406-7 (Version None)
Quarter: 2004Q3

REPORT INFORMATION
  Report Type: 
  Country: None (occurrence: None)
  Receive Date: 20040907
  Receipt Date: 20040421
  Transmission Date: 20050211
  Serious: No
  Sender: FDA-Public Use
  Company Number: US-BRISTOL-MYERS SQUIBB COMPANY-12566816

PATIENT
  Age: 61 Year
  Sex: Male
  Weight: 102 kg

DRUGS (3)
  1. COUMADIN [Suspect]
     Indication: HEART VALVE REPLACEMENT
     Dosage: DOSE VALUE:  10 MG FOR 4 DAYS, ALTERNATING WITH 12.5 FOR 3 DAYS.
     Route: 048
     Dates: start: 20030701
  2. ENALAPRIL MALEATE [Concomitant]
  3. METOPROLOL [Concomitant]

REACTIONS (1)
  - DRUG LEVEL FLUCTUATING [None]
